FAERS Safety Report 5065445-8 (Version None)
Quarter: 2006Q3

REPORT INFORMATION
  Report Type: 
  Country: None (occurrence: None)
  Receive Date: 20060706
  Receipt Date: 20050503
  Transmission Date: 20061208
  Serious: Yes (Death)
  Sender: FDA-Public Use
  Company Number: 1804

PATIENT
  Age: 42 Year
  Sex: Female
  Weight: 78.4723 kg

DRUGS (5)
  1. AVINZA [Suspect]
     Indication: BACK PAIN
     Dosage: 60 MG QD PO
     Route: 048
     Dates: start: 20040625, end: 20040629
  2. CARISOPRODOL [Concomitant]
  3. PROMETHAZINE GEL [Concomitant]
  4. VENLAFAXINE HCL [Concomitant]
  5. ZOLPIDEM [Concomitant]

REACTIONS (1)
  - DEATH [None]
